FAERS Safety Report 12653261 (Version 1)
Quarter: 2016Q3

REPORT INFORMATION
  Report Type: Spontaneous
  Country: JP (occurrence: JP)
  Receive Date: 20160815
  Receipt Date: 20160815
  Transmission Date: 20161109
  Serious: Yes (Life-Threatening, Hospitalization)
  Sender: FDA-Public Use
  Company Number: JP-BAYER-2016-158333

PATIENT
  Age: 80 Year
  Sex: Female

DRUGS (1)
  1. IOPROMIDE 370 [Suspect]
     Active Substance: IOPROMIDE
     Indication: OSTEOSARCOMA
     Dosage: 100 ML, UNK
     Route: 042
     Dates: start: 20160810

REACTIONS (2)
  - Cardiac arrest [Recovered/Resolved]
  - Dysphoria [Recovered/Resolved]

NARRATIVE: CASE EVENT DATE: 20160810
